FAERS Safety Report 7773219-X (Version None)
Quarter: 2011Q3

REPORT INFORMATION
  Report Type: 
  Country: None (occurrence: None)
  Receive Date: 20110922
  Receipt Date: 20110909
  Transmission Date: 20111222
  Serious: Yes (Other)
  Sender: FDA-Public Use
  Company Number: US-ASTRAZENECA-2011SE53425

PATIENT
  Age: 55 Year
  Sex: Male
  Weight: 62.6 kg

DRUGS (2)
  1. NEXIUM [Suspect]
     Indication: GASTROOESOPHAGEAL REFLUX DISEASE
     Route: 048
     Dates: start: 20030101, end: 20110501
  2. NEXIUM [Suspect]
     Route: 048
     Dates: start: 20040505, end: 20110525

REACTIONS (11)
  - DYSKINESIA [None]
  - TREMOR [None]
  - INTERVERTEBRAL DISC PROTRUSION [None]
  - PAIN IN EXTREMITY [None]
  - FACET JOINT SYNDROME [None]
  - RENAL FAILURE CHRONIC [None]
  - INTERVERTEBRAL DISC DISORDER [None]
  - BACK PAIN [None]
  - MUSCULAR WEAKNESS [None]
  - MUSCLE SPASMS [None]
  - LIMB DISCOMFORT [None]
